FAERS Safety Report 7477834-2 (Version None)
Quarter: 2011Q2

REPORT INFORMATION
  Report Type: 
  Country: None (occurrence: None)
  Receive Date: 20110513
  Receipt Date: 20100820
  Transmission Date: 20111010
  Serious: No
  Sender: FDA-Public Use
  Company Number: US-ABBOTT-10P-163-0666368-00

PATIENT
  Sex: Male

DRUGS (1)
  1. GENGRAF [Suspect]
     Indication: RHEUMATOID ARTHRITIS
     Dates: start: 20100525

REACTIONS (1)
  - RASH PAPULAR [None]
